FAERS Safety Report 5023773-6 (Version None)
Quarter: 2006Q2

REPORT INFORMATION
  Report Type: 
  Country: None (occurrence: None)
  Receive Date: 20060606
  Receipt Date: 20040920
  Transmission Date: 20061013
  Serious: Yes (Death, Life-Threatening, Hospitalization, Disabling)
  Sender: FDA-Public Use
  Company Number: 200412855EU

PATIENT
  Age: 73 Year
  Sex: Female

DRUGS (4)
  1. ARAVA [Suspect]
     Indication: RHEUMATOID ARTHRITIS
     Dosage: 20 MG COATED TABLETS ORAL
     Route: 048
     Dates: start: 20040501, end: 20040901
  2. METHOTREXATE [Suspect]
     Indication: RHEUMATOID ARTHRITIS
     Dosage: 10 MG EVERY WEEK ORAL
     Route: 048
     Dates: start: 20040701, end: 20040901
  3. PREDNISONE TAB [Concomitant]
  4. ENALAPRIL MALEATE AND HYDROCHLOROTHIAZIDE [Concomitant]

REACTIONS (4)
  - BREAST CANCER FEMALE [None]
  - DIARRHOEA [None]
  - PANCYTOPENIA [None]
  - WEIGHT DECREASED [None]
